FAERS Safety Report 25904249 (Version 1)
Quarter: 2025Q4

REPORT INFORMATION
  Report Type: Spontaneous
  Country: CN (occurrence: CN)
  Receive Date: 20251010
  Receipt Date: 20251010
  Transmission Date: 20260118
  Serious: Yes (Hospitalization, Other)
  Sender: ROCHE
  Company Number: CN-ROCHE-10000407301

PATIENT
  Age: 56 Year
  Sex: Female

DRUGS (1)
  1. SATRALIZUMAB [Suspect]
     Active Substance: SATRALIZUMAB
     Indication: Neuromyelitis optica spectrum disorder
     Route: 058
     Dates: start: 20250901, end: 20250928

REACTIONS (2)
  - Post herpetic neuralgia [Recovering/Resolving]
  - Herpes zoster [Recovering/Resolving]

NARRATIVE: CASE EVENT DATE: 20250928
